FAERS Safety Report 12661969 (Version 1)
Quarter: 2016Q3

REPORT INFORMATION
  Report Type: Spontaneous
  Country: US (occurrence: US)
  Receive Date: 20160817
  Receipt Date: 20160817
  Transmission Date: 20161109
  Serious: No
  Sender: FDA-Public Use
  Company Number: US-ACTELION-A-NJ2016-140427

PATIENT
  Age: 55 Year
  Sex: Male

DRUGS (18)
  1. ZOFRAN [Concomitant]
     Active Substance: ONDANSETRON HYDROCHLORIDE
  2. SPIRONOLACTONE. [Concomitant]
     Active Substance: SPIRONOLACTONE
  3. ATRIPLA [Concomitant]
     Active Substance: EFAVIRENZ\EMTRICITABINE\TENOFOVIR DISOPROXIL FUMARATE
  4. DOXYCYCLINE. [Concomitant]
     Active Substance: DOXYCYCLINE
  5. LACTULOSE. [Concomitant]
     Active Substance: LACTULOSE
  6. ADCIRCA [Concomitant]
     Active Substance: TADALAFIL
  7. FUROSEMIDE. [Concomitant]
     Active Substance: FUROSEMIDE
  8. XIFAXAN [Concomitant]
     Active Substance: RIFAXIMIN
  9. UPTRAVI [Suspect]
     Active Substance: SELEXIPAG
     Indication: PULMONARY ARTERIAL HYPERTENSION
     Dosage: 1600 MCG, UNK
     Route: 048
  10. DOCUSATE [Concomitant]
     Active Substance: DOCUSATE
  11. AMLODIPINE [Concomitant]
     Active Substance: AMLODIPINE BESYLATE
  12. PROMETHAZINE [Concomitant]
     Active Substance: PROMETHAZINE\PROMETHAZINE HYDROCHLORIDE
  13. MAGNESIUM [Concomitant]
     Active Substance: MAGNESIUM
  14. SIMETHICONE (DIMETHICONE) [Concomitant]
     Active Substance: DIMETHICONE
  15. AMBRISENTAN [Suspect]
     Active Substance: AMBRISENTAN
     Indication: PULMONARY ARTERIAL HYPERTENSION
     Dosage: 10 MG, QD
     Route: 065
     Dates: start: 20140422
  16. REMODULIN [Suspect]
     Active Substance: TREPROSTINIL
     Indication: PRODUCT USED FOR UNKNOWN INDICATION
     Route: 065
  17. RANITIDINE. [Concomitant]
     Active Substance: RANITIDINE
  18. OMEPRAZOLE. [Concomitant]
     Active Substance: OMEPRAZOLE

REACTIONS (4)
  - Dyspepsia [Unknown]
  - Nausea [Unknown]
  - Infusion site pain [Unknown]
  - Gastrooesophageal reflux disease [Unknown]
